FAERS Safety Report 20945518 (Version 3)
Quarter: 2022Q3

REPORT INFORMATION
  Report Type: Spontaneous
  Country: US (occurrence: US)
  Receive Date: 20220610
  Receipt Date: 20220826
  Transmission Date: 20221027
  Serious: Yes (Other)
  Sender: FDA-Public Use
  Company Number: US-PFIZER INC-202200178182

PATIENT
  Age: 50 Year
  Sex: Male

DRUGS (1)
  1. XELJANZ [Suspect]
     Active Substance: TOFACITINIB CITRATE
     Indication: Colitis ulcerative
     Dosage: 10 MG, 2X/DAY (10MG TWICE DAILY FOR MAXIMUM 16 WEEKS THEN XELJANZ 5MG TWICE DAILY MAINTENANCE)
     Route: 048
     Dates: start: 202202

REACTIONS (2)
  - Rectal haemorrhage [Unknown]
  - Frequent bowel movements [Unknown]
